FAERS Safety Report 4616014-2 (Version None)
Quarter: 2005Q1

REPORT INFORMATION
  Report Type: 
  Country: None (occurrence: None)
  Receive Date: 20050323
  Receipt Date: 20050311
  Transmission Date: 20050727
  Serious: Yes (Other)
  Sender: FDA-Public Use
  Company Number: DE-JNJFOC-20050303480

PATIENT
  Age: 70 Year
  Sex: Male

DRUGS (1)
  1. REOPRO [Suspect]
     Route: 042

REACTIONS (7)
  - BLOOD GLUCOSE DECREASED [None]
  - CHILLS [None]
  - GASTRIC HAEMORRHAGE [None]
  - HAEMATEMESIS [None]
  - HYPOTHERMIA [None]
  - HYPOTONIA [None]
  - PLATELET COUNT DECREASED [None]
